FAERS Safety Report 7981332-7 (Version None)
Quarter: 2011Q4

REPORT INFORMATION
  Report Type: 
  Country: None (occurrence: None)
  Receive Date: 20111212
  Receipt Date: 20111125
  Transmission Date: 20120403
  Serious: Yes (Other)
  Sender: FDA-Public Use
  Company Number: AUR-APL-2011-04290

PATIENT
  Age: 61 Year
  Sex: Female

DRUGS (17)
  1. LOSARTAN POTASSIUM [Concomitant]
  2. MEBEVERINE (MEBEVERINE) [Concomitant]
  3. DILTIAZEM [Suspect]
     Indication: PRODUCT USED FOR UNKNOWN INDICATION
     Dosage: 200 MG, ORAL
     Route: 048
     Dates: end: 20101006
  4. DILTIAZEM [Suspect]
     Indication: PRODUCT USED FOR UNKNOWN INDICATION
     Dosage: 200 MG, ORAL
     Route: 048
     Dates: start: 20110106
  5. DILTIAZEM HYDROCHLORIDE [Suspect]
     Indication: PRODUCT USED FOR UNKNOWN INDICATION
     Dosage: 200 MG, 1 D, ORAL
     Route: 048
     Dates: start: 20110106
  6. DILTIAZEM HYDROCHLORIDE [Suspect]
     Indication: PRODUCT USED FOR UNKNOWN INDICATION
     Dosage: 200 MG, 1 D, ORAL
     Route: 048
     Dates: start: 20101006, end: 20101104
  7. ASPIRIN [Concomitant]
  8. CHAPARRAL DANDELION BLEND (CHAPARRAL DANDELION BLEND) [Concomitant]
  9. INDAPAMIDE [Concomitant]
  10. HERBAL MEDICATION (HERBALIFE PRODUCTS) [Concomitant]
  11. SOTALOL HCL [Concomitant]
  12. BISOPROLOL FUMARATE [Suspect]
     Indication: PRODUCT USED FOR UNKNOWN INDICATION
     Dates: start: 20101001, end: 20101006
  13. RAMIPRIL [Suspect]
     Indication: BLOOD PRESSURE
     Dosage: 2.5 MG, 0.75 MG
     Dates: start: 20101206, end: 20101216
  14. RAMIPRIL [Suspect]
     Indication: BLOOD PRESSURE
     Dosage: 2.5 MG, 0.75 MG
     Dates: start: 20101118, end: 20101216
  15. BENDROFLUMETHIAZIDE (BENDROFLUMETHIAZIDE) [Concomitant]
  16. DANDELION (TARAXACUM OFFICINALE) [Concomitant]
  17. SIMVASTATIN [Concomitant]

REACTIONS (9)
  - HYPOAESTHESIA [None]
  - VISION BLURRED [None]
  - VISUAL IMPAIRMENT [None]
  - BLOOD PRESSURE INCREASED [None]
  - DRUG INTOLERANCE [None]
  - DRUG HYPERSENSITIVITY [None]
  - NAUSEA [None]
  - VERTIGO [None]
  - DIZZINESS EXERTIONAL [None]
